FAERS Safety Report 18666574 (Version 1)
Quarter: 2020Q4

REPORT INFORMATION
  Report Type: Spontaneous
  Country: GB (occurrence: GB)
  Receive Date: 20201227
  Receipt Date: 20201227
  Transmission Date: 20210114
  Serious: Yes (Other)
  Sender: FDA-Public Use
  Company Number: GB-TEVA-2020-GB-1861903

PATIENT
  Age: 33 Year
  Sex: Female
  Weight: 77 kg

DRUGS (5)
  1. AMOXICILLIN. [Suspect]
     Active Substance: AMOXICILLIN
     Dosage: FOR 5 DAYS. , UNIT DOSE : 1500 MG
     Dates: start: 20201126
  2. FLUOXETINE [Concomitant]
     Active Substance: FLUOXETINE HYDROCHLORIDE
     Dosage: UNIT DOSE :  1 DF
     Dates: start: 20170315
  3. PROPRANOLOL [Concomitant]
     Active Substance: PROPRANOLOL HYDROCHLORIDE
     Dosage: UP TO 2-3 TIMES/DAY. , UNIT DOSE : 1 DF
     Dates: start: 20160307
  4. CETIRIZINE [Concomitant]
     Active Substance: CETIRIZINE HYDROCHLORIDE
     Dosage: UNIT DOSE :  1 DF
     Dates: start: 20201127
  5. DOXYCYCLINE. [Concomitant]
     Active Substance: DOXYCYCLINE
     Indication: COUGH
     Dosage: CONSIDER DELATED SCRIPT.
     Dates: start: 20201127

REACTIONS (4)
  - Tremor [Unknown]
  - Diarrhoea [Unknown]
  - Paraesthesia oral [Unknown]
  - Tongue pruritus [Recovered/Resolved]

NARRATIVE: CASE EVENT DATE: 20201127
